FAERS Safety Report 6419821-9 (Version None)
Quarter: 2009Q4

REPORT INFORMATION
  Report Type: 
  Country: None (occurrence: None)
  Receive Date: 20091029
  Receipt Date: 20091020
  Transmission Date: 20100525
  Serious: Yes (Other)
  Sender: FDA-Public Use
  Company Number: CN-GENENTECH-292781

PATIENT

DRUGS (1)
  1. NUTROPIN [Suspect]
     Indication: LIVER TRANSPLANT

REACTIONS (1)
  - BLOOD GLUCOSE INCREASED [None]
